FAERS Safety Report 16412510 (Version 3)
Quarter: 2019Q3

REPORT INFORMATION
  Report Type: Report from Study
  Country: None (occurrence: BR)
  Receive Date: 20190610
  Receipt Date: 20190807
  Transmission Date: 20191004
  Serious: Yes (Hospitalization, Disabling, Other)
  Sender: FDA-Public Use
  Company Number: BR-ABBVIE-19K-020-2813053-00

PATIENT
  Age: 74 Year
  Sex: Female
  Weight: 68 kg

DRUGS (1)
  1. HUMIRA [Suspect]
     Active Substance: ADALIMUMAB
     Indication: RHEUMATOID ARTHRITIS
     Route: 058
     Dates: start: 20160214, end: 201905

REACTIONS (12)
  - Noninfective encephalitis [Not Recovered/Not Resolved]
  - Cerebrovascular accident [Unknown]
  - Malaise [Unknown]
  - Balance disorder [Unknown]
  - Encephalolith [Unknown]
  - Stroke in evolution [Unknown]
  - Hemiplegia [Recovering/Resolving]
  - Wound [Unknown]
  - Infection [Unknown]
  - Bedridden [Unknown]
  - Daydreaming [Unknown]
  - Central nervous system infection [Not Recovered/Not Resolved]

NARRATIVE: CASE EVENT DATE: 20190517
